FAERS Safety Report 17018358 (Version 2)
Quarter: 2020Q1

REPORT INFORMATION
  Report Type: Spontaneous
  Country: US (occurrence: US)
  Receive Date: 20191111
  Receipt Date: 20200116
  Transmission Date: 20200409
  Serious: Yes (Hospitalization, Other)
  Sender: FDA-Public Use
  Company Number: NVSC2019US030111

PATIENT
  Sex: Male
  Weight: 13.15 kg

DRUGS (1)
  1. ZOLGENSMA [Suspect]
     Active Substance: ONASEMNOGENE ABEPARVOVEC-XIOI
     Indication: SPINAL MUSCULAR ATROPHY
     Dosage: UNK, ONCE/SINGLE
     Route: 042
     Dates: start: 201908, end: 201908

REACTIONS (13)
  - Periorbital swelling [Recovered/Resolved]
  - Blood urea increased [Recovered/Resolved]
  - Eye swelling [Recovered/Resolved]
  - Blood calcium increased [Recovered/Resolved]
  - Glomerulonephritis [Recovered/Resolved]
  - Hypoproteinaemia [Recovered/Resolved]
  - Renal impairment [Recovered/Resolved]
  - Peripheral swelling [Recovered/Resolved]
  - Blood urine present [Recovered/Resolved]
  - Proteinuria [Recovered/Resolved]
  - Hypertension [Unknown]
  - Blood sodium increased [Recovered/Resolved]
  - Heart rate decreased [Recovered/Resolved]

NARRATIVE: CASE EVENT DATE: 20190817
